FAERS Safety Report 7465694-5 (Version None)
Quarter: 2011Q2

REPORT INFORMATION
  Report Type: 
  Country: None (occurrence: None)
  Receive Date: 20110509
  Receipt Date: 20110503
  Transmission Date: 20111010
  Serious: Yes (Life-Threatening, Hospitalization, Other)
  Sender: FDA-Public Use
  Company Number: B0712609A

PATIENT
  Sex: Female
  Weight: 94 kg

DRUGS (11)
  1. EBRANTIL RETARD [Concomitant]
  2. LYRICA [Concomitant]
  3. TANATRIL [Concomitant]
  4. SIOFOR [Concomitant]
  5. URSO FALK [Concomitant]
  6. PROMACTA [Suspect]
     Indication: IDIOPATHIC THROMBOCYTOPENIC PURPURA
     Dosage: 50MG PER DAY
     Route: 048
     Dates: start: 20110321, end: 20110327
  7. LOKREN [Concomitant]
  8. MOXONIDIN [Concomitant]
  9. ALFA-LIPOIC ACID [Concomitant]
  10. ACECLOFENAC [Concomitant]
  11. LACIPIL [Concomitant]

REACTIONS (7)
  - NAUSEA [None]
  - CHEST DISCOMFORT [None]
  - ACUTE CORONARY SYNDROME [None]
  - CHEST PAIN [None]
  - MYOCARDIAL INFARCTION [None]
  - DECREASED APPETITE [None]
  - PLATELET COUNT INCREASED [None]
